FAERS Safety Report 15195214 (Version 2)
Quarter: 2021Q3

REPORT INFORMATION
  Report Type: Spontaneous
  Country: US (occurrence: US)
  Receive Date: 20180725
  Receipt Date: 20210818
  Transmission Date: 20211014
  Serious: Yes (Disabling)
  Sender: FDA-Public Use
  Company Number: US-TEVA-2018-US-931707

PATIENT
  Age: 46 Year
  Sex: Female

DRUGS (3)
  1. TAXOTERE [Suspect]
     Active Substance: DOCETAXEL
     Indication: BREAST CANCER FEMALE
     Dosage: DOSAGE: 253.2 ML/HR, NUMBER OF CYCLE ? 06, FREQUENCY ? EVERY WEEK
     Route: 065
     Dates: start: 20131223, end: 20140127
  2. DOCETAXEL. [Suspect]
     Active Substance: DOCETAXEL
     Indication: BREAST CANCER FEMALE
     Dosage: DOSAGE: 253.2 ML/HR, NUMBER OF CYCLE ? 06, FREQUENCY ? EVERY WEEK
     Route: 065
     Dates: start: 20131223, end: 20140121
  3. TAXOL [Concomitant]
     Active Substance: PACLITAXEL
     Indication: BREAST CANCER FEMALE
     Dosage: DOSAGE: 253.2 ML/HR, NUMBER OF CYCLE ? 06, FREQUENCY ? EVERY WEEK
     Dates: start: 20131223, end: 20140121

REACTIONS (5)
  - Hair texture abnormal [Not Recovered/Not Resolved]
  - Alopecia totalis [Not Recovered/Not Resolved]
  - Hair colour changes [Not Recovered/Not Resolved]
  - Alopecia areata [Not Recovered/Not Resolved]
  - Madarosis [Not Recovered/Not Resolved]

NARRATIVE: CASE EVENT DATE: 201312
